FAERS Safety Report 4457333-2 (Version None)
Quarter: 2004Q3

REPORT INFORMATION
  Report Type: 
  Country: None (occurrence: None)
  Receive Date: 20040922
  Receipt Date: 20040913
  Transmission Date: 20050211
  Serious: Yes (Death, Hospitalization, Other)
  Sender: FDA-Public Use
  Company Number: US-JNJFOC-20040903708

PATIENT
  Age: 24 Year
  Sex: Female

DRUGS (5)
  1. EXTRA STRENGTH TYLENOL [Suspect]
     Indication: SUICIDE ATTEMPT
  2. PAROXETINE HCL [Suspect]
     Indication: SUICIDE ATTEMPT
  3. ETHANOL (ETHANOL) [Suspect]
     Indication: SUICIDE ATTEMPT
  4. ZALEPLON (ZALEPLON) [Suspect]
     Indication: SUICIDE ATTEMPT
  5. TEMAZEPAM [Suspect]
     Indication: SUICIDE ATTEMPT

REACTIONS (11)
  - ALANINE AMINOTRANSFERASE INCREASED [None]
  - APNOEA [None]
  - ASPARTATE AMINOTRANSFERASE INCREASED [None]
  - BLOOD ETHANOL INCREASED [None]
  - BLOOD PRESSURE INCREASED [None]
  - CARDIAC ARREST [None]
  - CYANOSIS [None]
  - DISSEMINATED INTRAVASCULAR COAGULATION [None]
  - ENCEPHALOPATHY [None]
  - HEART RATE INCREASED [None]
  - RHABDOMYOLYSIS [None]
